FAERS Safety Report 10647172 (Version 1)
Quarter: 2014Q4

REPORT INFORMATION
  Report Type: Spontaneous
  Country: US (occurrence: None)
  Receive Date: 20141205
  Receipt Date: 20141205
  Transmission Date: 20150529
  Serious: No
  Sender: FDA-Public Use
  Company Number: 163-POMAL-14092164

PATIENT
  Age: 66 Year
  Sex: Female

DRUGS (11)
  1. LORATADINE (LORATADINE) (UNKNOWN) [Concomitant]
  2. VITAMIN D (ERGOCALCIFEROL) (UNKNOWN) [Concomitant]
  3. FOLIC ACID (FOLIC ACID) (UNKNOWN) [Concomitant]
  4. CALCIUM CARBONATE (UNKNOWN) [Concomitant]
     Active Substance: CALCIUM CARBONATE
  5. VITAMIN B COMPLEX (PYRIDOXINE HYDROCHLORIDE, THIAMINE HYDROCHLORIDE, RIBOFLAVIN, NICOTINAMIDE, CALCIUM PANTOTHENATE) (UNKNOWN) [Concomitant]
  6. POMALYST [Suspect]
     Active Substance: POMALIDOMIDE
     Indication: PLASMA CELL MYELOMA
     Dosage: 2 MG, 21 IN 28 D, PO
     Route: 048
     Dates: start: 20140821
  7. FISH OIL (FISH OIL) (UNKNOWN) [Concomitant]
  8. TYLENOL (PARACETAMOL) (UNKNOWN) [Concomitant]
  9. MULTIVITAMINS (ERGOCALCIFEROL, ASCORBIC ACID, FOLIC ACID, THIAMINE HYDROCHLORIDE, RETINOL, RIBOFLAVIN, NICOTINAMIDE, PANTHENOL) (UNKNOWN) [Concomitant]
  10. TACLONEX (BETAMETHASONE DIPROPIONATE, CALCIPOTRIOL) (UNKNOWN) [Concomitant]
  11. ECOTRIN (ACETYLSALICYLIC ACID) (UNKNOWN) [Concomitant]

REACTIONS (1)
  - Dry eye [None]

NARRATIVE: CASE EVENT DATE: 2014
